FAERS Safety Report 8098401-6 (Version None)
Quarter: 2012Q1

REPORT INFORMATION
  Report Type: 
  Country: None (occurrence: None)
  Receive Date: 20120131
  Receipt Date: 20120119
  Transmission Date: 20120608
  Serious: Yes (Hospitalization)
  Sender: FDA-Public Use
  Company Number: FR-MERCK-1201USA03015

PATIENT
  Age: 72 Year
  Sex: Male

DRUGS (7)
  1. ZOCOR [Suspect]
     Route: 048
     Dates: start: 20091201, end: 20111206
  2. COLCHIMAX (COLCHICINE (+) OPIUM, POWDERED (+) TIEMONIUM METHYLSULFATE) [Concomitant]
     Route: 065
     Dates: start: 20091201, end: 20111212
  3. ESCITALOPRAM OXALATE [Concomitant]
     Indication: DEPRESSION
     Route: 048
     Dates: start: 20100101
  4. POTASSIUM CHLORIDE [Concomitant]
     Route: 065
  5. TRAMADOL HCL [Concomitant]
     Route: 048
     Dates: start: 20091201, end: 20111206
  6. PREDNISONE TAB [Concomitant]
     Route: 048
     Dates: start: 20091201
  7. TERCIAN [Concomitant]
     Indication: DEPRESSION
     Route: 048
     Dates: start: 20100101

REACTIONS (1)
  - ORGANISING PNEUMONIA [None]
